FAERS Safety Report 4879783-2 (Version None)
Quarter: 2006Q1

REPORT INFORMATION
  Report Type: 
  Country: None (occurrence: None)
  Receive Date: 20060111
  Receipt Date: 20060105
  Transmission Date: 20060701
  Serious: Yes (Other)
  Sender: FDA-Public Use
  Company Number: TAP2005Q02245

PATIENT
  Sex: Male

DRUGS (14)
  1. LUPRON DEPOT-4 [Suspect]
     Indication: PROSTATE CANCER
     Dosage: 30 MG (30 MG, 1 IN  4 M)
     Dates: start: 20050831
  2. FOSAMAX [Concomitant]
  3. VASOTEC [Concomitant]
  4. ADALAT XL (NIFEDIPINE) [Concomitant]
  5. PLAVIX [Concomitant]
  6. RHOXAL BISOPROLOL (BISOPROLOL FUMARATE) [Concomitant]
  7. ASAPHEN (ACETYLSALICYLIC ACID) [Concomitant]
  8. NOVO TRIAZIDE [Concomitant]
  9. APO MEGESTROL (MEGESTROL) [Concomitant]
  10. APO OXAZEPAM (OXAZEPAM) [Concomitant]
  11. RIVASIMVASTATIN (SIMVASTATIN) [Concomitant]
  12. CELEBREX [Interacting]
  13. RHO NITRO (GLYCERYL TRINITRATE) [Concomitant]
  14. OXYCONTIN [Concomitant]

REACTIONS (2)
  - CONDITION AGGRAVATED [None]
  - LUNG NEOPLASM MALIGNANT [None]
